FAERS Safety Report 15417902 (Version 1)
Quarter: 2018Q3

REPORT INFORMATION
  Report Type: Other
  Country: TR (occurrence: TR)
  Receive Date: 20180924
  Receipt Date: 20180924
  Transmission Date: 20181010
  Serious: Yes (Life-Threatening, Hospitalization)
  Sender: FDA-Public Use
  Company Number: TR-SAPTALIS PHARMACEUTICALS LLC-2055251

PATIENT
  Age: 23 Year

DRUGS (3)
  1. LORAZEPAM. [Suspect]
     Active Substance: LORAZEPAM
     Indication: ACUTE PSYCHOSIS
     Route: 065
  2. RISPERIDONE. [Suspect]
     Active Substance: RISPERIDONE
     Route: 065
  3. QUETIAPINE. [Suspect]
     Active Substance: QUETIAPINE
     Route: 065

REACTIONS (2)
  - Product use in unapproved indication [Unknown]
  - Neuroleptic malignant syndrome [Recovered/Resolved]
